FAERS Safety Report 7762098-2 (Version None)
Quarter: 2011Q3

REPORT INFORMATION
  Report Type: 
  Country: None (occurrence: None)
  Receive Date: 20110920
  Receipt Date: 20110920
  Transmission Date: 20111222
  Serious: Yes (Other)
  Sender: FDA-Public Use
  Company Number: None

PATIENT
  Age: 45 Year
  Sex: Female
  Weight: 55.338 kg

DRUGS (1)
  1. PREMPRO [Suspect]
     Indication: HOT FLUSH
     Dosage: 1 PO
     Route: 048
     Dates: start: 20110802, end: 20110916

REACTIONS (12)
  - BACK PAIN [None]
  - MENORRHAGIA [None]
  - AMENORRHOEA [None]
  - HEADACHE [None]
  - CONSTIPATION [None]
  - ABDOMINAL DISTENSION [None]
  - FLUID RETENTION [None]
  - NAUSEA [None]
  - INCREASED APPETITE [None]
  - PELVIC PAIN [None]
  - HOT FLUSH [None]
  - NIGHT SWEATS [None]
